FAERS Safety Report 10059141 (Version 1)
Quarter: 2014Q2

REPORT INFORMATION
  Report Type: Spontaneous
  Country: JP (occurrence: JP)
  Receive Date: 20140404
  Receipt Date: 20140404
  Transmission Date: 20141212
  Serious: Yes (Other)
  Sender: FDA-Public Use
  Company Number: JP-BRISTOL-MYERS SQUIBB COMPANY-20590287

PATIENT
  Age: 7 Decade
  Sex: 0

DRUGS (1)
  1. HYDREA CAPS [Suspect]
     Route: 048

REACTIONS (1)
  - Cardiomyopathy [Unknown]
